FAERS Safety Report 22035179 (Version 1)
Quarter: 2023Q1

REPORT INFORMATION
  Report Type: Spontaneous
  Country: US (occurrence: None)
  Receive Date: 20230224
  Receipt Date: 20230224
  Transmission Date: 20230418
  Serious: Yes (Death, Other)
  Sender: FDA-Public Use
  Company Number: 2023A044760

PATIENT

DRUGS (1)
  1. PRILOSEC OTC [Suspect]
     Active Substance: OMEPRAZOLE MAGNESIUM
     Route: 048
     Dates: start: 2015, end: 2022

REACTIONS (6)
  - Death [Fatal]
  - Acute kidney injury [Unknown]
  - Pancreatic carcinoma [Unknown]
  - Renal failure [Unknown]
  - Renal impairment [Unknown]
  - Rebound acid hypersecretion [Unknown]
